FAERS Safety Report 24183526 (Version 1)
Quarter: 2024Q3

REPORT INFORMATION
  Report Type: Spontaneous
  Country: MX (occurrence: MX)
  Receive Date: 20240807
  Receipt Date: 20240807
  Transmission Date: 20241017
  Serious: Yes (Hospitalization)
  Sender: RARE DISEASE THERAPEUTICS
  Company Number: MX-Rare Disease Therapeutics, Inc.-2160119

PATIENT
  Age: 20 Year
  Sex: Female
  Weight: 62 kg

DRUGS (2)
  1. ANASCORP [Suspect]
     Active Substance: SCORPION (CENTRUROIDES) IMMUNE FAB2 ANTIVENIN (EQUINE)
     Route: 042
     Dates: start: 20240504, end: 20240504
  2. VALPROATE MAGNESIUM [Concomitant]
     Active Substance: VALPROATE MAGNESIUM

REACTIONS (2)
  - Anaphylactic reaction [Recovered/Resolved]
  - Type IV hypersensitivity reaction [Recovered/Resolved]

NARRATIVE: CASE EVENT DATE: 20240504
